FAERS Safety Report 5523256-0 (Version None)
Quarter: 2007Q4

REPORT INFORMATION
  Report Type: 
  Country: None (occurrence: None)
  Receive Date: 20071119
  Receipt Date: 20071119
  Transmission Date: 20080405
  Serious: Yes (Death, Life-Threatening, Hospitalization)
  Sender: FDA-Public Use
  Company Number: None

PATIENT
  Age: 78 Year
  Sex: Male
  Weight: 85.7298 kg

DRUGS (1)
  1. AMIODARONE HCL [Suspect]
     Indication: HEART RATE INCREASED
     Dosage: ONCE A DAY; AUGUST 28, 2007
     Dates: start: 20070205, end: 20070828

REACTIONS (1)
  - ADVERSE DRUG REACTION [None]
